FAERS Safety Report 23819310 (Version 2)
Quarter: 2024Q2

REPORT INFORMATION
  Report Type: Spontaneous
  Country: DE (occurrence: DE)
  Receive Date: 20240506
  Receipt Date: 20240506
  Transmission Date: 20240716
  Serious: Yes (Other)
  Sender: FDA-Public Use
  Company Number: DE-CELLTRION HEALTHCARE HUNGARY KFT-2024DE008561

PATIENT
  Age: 21 Year
  Sex: Male

DRUGS (5)
  1. REMICADE [Suspect]
     Active Substance: INFLIXIMAB
     Indication: Product used for unknown indication
     Dosage: 2X IV 400 MG
     Route: 042
     Dates: start: 20240123
  2. INFLIXIMAB [Suspect]
     Active Substance: INFLIXIMAB
     Indication: Crohn^s disease
     Dosage: 120MG EVERY 14 DAYS
  3. INFLIXIMAB [Suspect]
     Active Substance: INFLIXIMAB
     Dosage: UNK
  4. INFLIXIMAB [Suspect]
     Active Substance: INFLIXIMAB
     Dosage: UNK
  5. INFLIXIMAB [Suspect]
     Active Substance: INFLIXIMAB
     Dosage: UNK

REACTIONS (2)
  - Cutaneous vasculitis [Unknown]
  - Henoch-Schonlein purpura [Not Recovered/Not Resolved]

NARRATIVE: CASE EVENT DATE: 20240101
